FAERS Safety Report 19481241 (Version 1)
Quarter: 2021Q2

REPORT INFORMATION
  Report Type: Spontaneous
  Country: US (occurrence: US)
  Receive Date: 20210629
  Receipt Date: 20210629
  Transmission Date: 20210717
  Serious: Yes (Hospitalization)
  Sender: FDA-Public Use
  Company Number: None

PATIENT
  Age: 32 Year
  Sex: Female
  Weight: 70.31 kg

DRUGS (4)
  1. PARAGARD T 380A [Suspect]
     Active Substance: COPPER
     Dates: start: 20190429
  2. LEXAPRO [Concomitant]
     Active Substance: ESCITALOPRAM OXALATE
  3. MULTIVITAMIN [Concomitant]
     Active Substance: VITAMINS
  4. WILLBUTRON [Concomitant]

REACTIONS (1)
  - Device dislocation [None]

NARRATIVE: CASE EVENT DATE: 20210430
